FAERS Safety Report 13553493 (Version 1)
Quarter: 2017Q2

REPORT INFORMATION
  Report Type: Spontaneous
  Country: US (occurrence: US)
  Receive Date: 20170517
  Receipt Date: 20170517
  Transmission Date: 20170830
  Serious: No
  Sender: FDA-Public Use
  Company Number: US-BAYER-2017-093402

PATIENT
  Age: 67 Year
  Sex: Female
  Weight: 39 kg

DRUGS (1)
  1. MIRALAX [Suspect]
     Active Substance: POLYETHYLENE GLYCOL 3350
     Indication: GASTROINTESTINAL DISORDER
     Dosage: 1 DF, UNK
     Route: 048

REACTIONS (3)
  - Abnormal faeces [Recovered/Resolved]
  - Faeces soft [Recovered/Resolved]
  - Frequent bowel movements [Recovered/Resolved]
